FAERS Safety Report 7079426-6 (Version None)
Quarter: 2010Q4

REPORT INFORMATION
  Report Type: 
  Country: None (occurrence: None)
  Receive Date: 20101022
  Receipt Date: 20101015
  Transmission Date: 20110411
  Serious: Yes (Death)
  Sender: FDA-Public Use
  Company Number: TPA2010A05410

PATIENT
  Age: 79 Year
  Sex: Female

DRUGS (13)
  1. ULORIC [Suspect]
     Indication: GOUT
     Dosage: 80 MG
     Dates: start: 20090501, end: 20100601
  2. PALAFER (FERROUS DUMARATE) [Concomitant]
  3. AMIODARONE HCL [Concomitant]
  4. CARVEDILOL [Concomitant]
  5. SIMVASTATIN [Concomitant]
  6. COZAAR [Concomitant]
  7. ACETYLSALICYLIC ACID [Concomitant]
  8. CALCIUM [Concomitant]
  9. VITAMIN D [Concomitant]
  10. SPIRONOLACTONE [Concomitant]
  11. SYNTHROID [Concomitant]
  12. DIAMICRON (GLICLAZIDE) [Concomitant]
  13. RABEPRAZOLE SODIUM [Concomitant]

REACTIONS (2)
  - COMPLETED SUICIDE [None]
  - INTENTIONAL OVERDOSE [None]
